FAERS Safety Report 8580902-5 (Version None)
Quarter: 2012Q3

REPORT INFORMATION
  Report Type: 
  Country: None (occurrence: None)
  Receive Date: 20120809
  Receipt Date: 20120806
  Transmission Date: 20120928
  Serious: Yes (Hospitalization)
  Sender: FDA-Public Use
  Company Number: US-VERTEX PHARMACEUTICALS INC.-AE-2011-000063

PATIENT
  Sex: Male
  Weight: 111.13 kg

DRUGS (8)
  1. PEGASYS [Suspect]
     Route: 058
     Dates: start: 20110318
  2. VX-950 [Suspect]
     Indication: HEPATITIS C
     Route: 048
     Dates: start: 20110203, end: 20110313
  3. COPEGUS [Suspect]
     Route: 048
     Dates: start: 20110321
  4. LISINOPRIL [Concomitant]
     Indication: HYPERTENSION
     Route: 048
  5. CLARINEX [Concomitant]
     Route: 048
     Dates: start: 20110303
  6. KENALOG [Concomitant]
     Indication: RASH
     Route: 061
  7. PEGASYS [Suspect]
     Indication: HEPATITIS C
     Route: 058
     Dates: start: 20110203, end: 20110310
  8. COPEGUS [Suspect]
     Indication: HEPATITIS C
     Route: 048
     Dates: start: 20110203, end: 20110313

REACTIONS (2)
  - CHEST DISCOMFORT [None]
  - URTICARIA [None]
